FAERS Safety Report 17229186 (Version 1)
Quarter: 2020Q1

REPORT INFORMATION
  Report Type: Spontaneous
  Country: US (occurrence: US)
  Receive Date: 20200102
  Receipt Date: 20200102
  Transmission Date: 20200409
  Serious: No
  Sender: FDA-Public Use
  Company Number: None

PATIENT
  Age: 62 Year
  Sex: Female
  Weight: 90 kg

DRUGS (23)
  1. PANTOPRAZOLE [Concomitant]
     Active Substance: PANTOPRAZOLE
  2. GABAPENTIN. [Concomitant]
     Active Substance: GABAPENTIN
  3. TOPIRAMATE. [Concomitant]
     Active Substance: TOPIRAMATE
  4. C-KETAMINE [Concomitant]
  5. BIOTIN [Concomitant]
     Active Substance: BIOTIN
  6. LEFLUNAMIDE [Suspect]
     Active Substance: LEFLUNOMIDE
     Indication: PSORIATIC ARTHROPATHY
     Dosage: ?          QUANTITY:1 TABLET(S);?
     Route: 048
  7. LISINOPRIL. [Concomitant]
     Active Substance: LISINOPRIL
  8. FOLIC ACID. [Concomitant]
     Active Substance: FOLIC ACID
  9. DULOXETINE. [Concomitant]
     Active Substance: DULOXETINE
  10. CYCLOBENZAPRINE. [Concomitant]
     Active Substance: CYCLOBENZAPRINE
  11. FLUCONAZOLE. [Concomitant]
     Active Substance: FLUCONAZOLE
  12. VITAMIN B12 [Concomitant]
     Active Substance: CYANOCOBALAMIN
  13. ATORVASTATIN [Concomitant]
     Active Substance: ATORVASTATIN
  14. MULTIVITAMIN [Concomitant]
     Active Substance: VITAMINS
  15. PROBIOTIC [Concomitant]
     Active Substance: PROBIOTICS NOS
  16. LEVOTHYROXINE. [Concomitant]
     Active Substance: LEVOTHYROXINE
  17. C-NALTREXONE [Concomitant]
  18. CHOLESTYRAMINE LIGHT [Concomitant]
     Active Substance: CHOLESTYRAMINE
  19. D [Concomitant]
  20. PREDNISONE. [Concomitant]
     Active Substance: PREDNISONE
  21. CELEBREX [Concomitant]
     Active Substance: CELECOXIB
  22. LIDOCAINE. [Concomitant]
     Active Substance: LIDOCAINE
  23. FIBER [Concomitant]
     Active Substance: PSYLLIUM HUSK

REACTIONS (6)
  - Rash [None]
  - Migraine [None]
  - Vaginal infection [None]
  - Alopecia [None]
  - Skin exfoliation [None]
  - Fungal skin infection [None]

NARRATIVE: CASE EVENT DATE: 20191220
